FAERS Safety Report 21386470 (Version 1)
Quarter: 2022Q3

REPORT INFORMATION
  Report Type: Spontaneous
  Country: BR (occurrence: None)
  Receive Date: 20220928
  Receipt Date: 20220928
  Transmission Date: 20221027
  Serious: No
  Sender: FDA-Public Use
  Company Number: BR-ROCHE-3188536

PATIENT
  Sex: Female

DRUGS (1)
  1. OCREVUS [Suspect]
     Active Substance: OCRELIZUMAB
     Indication: Progressive multiple sclerosis
     Route: 065

REACTIONS (10)
  - Dysgeusia [Unknown]
  - Motion sickness [Unknown]
  - Dyspepsia [Unknown]
  - Oral herpes [Unknown]
  - Urinary tract disorder [Unknown]
  - Infusion related reaction [Unknown]
  - Malaise [Unknown]
  - Dyspepsia [Unknown]
  - Nasal ulcer [Unknown]
  - Stomatitis [Unknown]
